FAERS Safety Report 7794602-2 (Version None)
Quarter: 2011Q4

REPORT INFORMATION
  Report Type: 
  Country: None (occurrence: None)
  Receive Date: 20111004
  Receipt Date: 20110921
  Transmission Date: 20120403
  Serious: Yes (Hospitalization)
  Sender: FDA-Public Use
  Company Number: US-TYCO HEALTHCARE/MALLINCKRODT-T201101910

PATIENT
  Age: 70 Year
  Sex: Male

DRUGS (1)
  1. CONRAY [Suspect]
     Dosage: 15 ML, SINGLE
     Route: 037
     Dates: start: 20110921, end: 20110921

REACTIONS (4)
  - INCORRECT ROUTE OF DRUG ADMINISTRATION [None]
  - FAECAL INCONTINENCE [None]
  - URINARY INCONTINENCE [None]
  - MUSCULAR WEAKNESS [None]
